FAERS Safety Report 7570983-X (Version None)
Quarter: 2011Q2

REPORT INFORMATION
  Report Type: 
  Country: None (occurrence: None)
  Receive Date: 20110620
  Receipt Date: 20110607
  Transmission Date: 20111010
  Serious: Yes (Other)
  Sender: FDA-Public Use
  Company Number: 1000021630

PATIENT
  Age: 45 Year
  Sex: Male

DRUGS (6)
  1. DAFALGAN CODEIN (PANADEINE CO) (TABLETS) (PANADEINE CO) [Concomitant]
  2. ESCITALOPRAM [Suspect]
     Dosage: 20 MG (10 MG, 2 IN 1 D), ORAL
     Route: 048
     Dates: start: 20110428, end: 20110512
  3. LEXOMIL (BROMAZEPAM) (TABLETS) (BROMAZEPAM) [Concomitant]
  4. TERCIAN (CYAMEMAZINE) (CYAMEMAZINE) [Concomitant]
  5. TRAMADOL HYDROCHLORIDE [Suspect]
     Dosage: 300 MG (150 MG, 2 IN 1 D), ORAL
     Route: 048
     Dates: start: 20110511, end: 20110512
  6. XYLOCAINE VISQUEUS (XYLOCAIN VISCOS /02029501/) (GEL) (XYLOCAIN VISCOS [Concomitant]

REACTIONS (6)
  - HYPERHIDROSIS [None]
  - TACHYCARDIA [None]
  - PAIN IN EXTREMITY [None]
  - LOSS OF CONSCIOUSNESS [None]
  - HYPOTENSION [None]
  - HYPERTHERMIA [None]
